FAERS Safety Report 7319746-0 (Version None)
Quarter: 2011Q1

REPORT INFORMATION
  Report Type: 
  Country: None (occurrence: None)
  Receive Date: 20110228
  Receipt Date: 20100903
  Transmission Date: 20110831
  Serious: No
  Sender: FDA-Public Use
  Company Number: A0879560A

PATIENT
  Age: 25 Year
  Sex: Female

DRUGS (3)
  1. ORTHO TRI-CYCLEN [Concomitant]
  2. CLONAZEPAM [Concomitant]
  3. LAMICTAL [Suspect]
     Indication: BIPOLAR I DISORDER
     Dosage: 200MG PER DAY
     Route: 048
     Dates: start: 20100401, end: 20100901

REACTIONS (2)
  - PRURITUS [None]
  - RASH [None]
